FAERS Safety Report 10760124 (Version 2)
Quarter: 2017Q4

REPORT INFORMATION
  Report Type: Report from Study
  Country: DE (occurrence: DE)
  Receive Date: 20150204
  Receipt Date: 20171108
  Transmission Date: 20180320
  Serious: Yes (Death, Hospitalization)
  Sender: FDA-Public Use
  Company Number: DE-ROCHE-1443228

PATIENT
  Age: 76 Year
  Sex: Female
  Weight: 65 kg

DRUGS (10)
  1. BEVACIZUMAB. [Suspect]
     Active Substance: BEVACIZUMAB
     Route: 042
     Dates: start: 20140604, end: 20140604
  2. NOVALGIN [Concomitant]
     Active Substance: METAMIZOLE SODIUM
     Indication: PAIN
     Route: 048
     Dates: start: 20130829
  3. XELODA [Suspect]
     Active Substance: CAPECITABINE
     Dosage: 14 08/NOV/2013, 04/DEC/2013, 25/DEC/2013, 15/JAN/2014, 05/FEB/2014, 26/FEB/2014, 19/MAR/2014, 09/APR
     Route: 048
     Dates: start: 20130929, end: 20140603
  4. ACC [Concomitant]
     Active Substance: ACETYLCYSTEINE
     Indication: RESPIRATORY TRACT CONGESTION
     Route: 048
     Dates: start: 20131212
  5. XELODA [Suspect]
     Active Substance: CAPECITABINE
     Indication: BREAST CANCER
     Dosage: FROM DAY 1 TO DAY 14 ON 14/JUN/2013
     Route: 048
     Dates: start: 20130524, end: 20130627
  6. PARACODIN [Concomitant]
     Active Substance: DIHYDROCODEINE BITARTRATE
     Indication: COUGH
     Route: 048
     Dates: start: 20130809
  7. BEVACIZUMAB. [Suspect]
     Active Substance: BEVACIZUMAB
     Indication: BREAST CANCER
     Route: 042
     Dates: start: 20130607, end: 20130607
  8. IBUPROFEN. [Concomitant]
     Active Substance: IBUPROFEN
     Indication: PAIN
     Route: 048
     Dates: start: 20130829
  9. XELODA [Suspect]
     Active Substance: CAPECITABINE
     Dosage: FROM DAY 1 TO DAY 14 26/JUL/2013, 24/AUG/2013
     Route: 048
     Dates: start: 20130705, end: 20130906
  10. RANIBETA [Concomitant]
     Indication: PROPHYLAXIS AGAINST GASTROINTESTINAL ULCER
     Route: 048
     Dates: start: 20130719

REACTIONS (6)
  - Brain contusion [Recovered/Resolved with Sequelae]
  - Skull fractured base [Recovered/Resolved with Sequelae]
  - Haemorrhage intracranial [Recovered/Resolved]
  - Fall [Unknown]
  - Laceration [Recovered/Resolved]
  - Malignant neoplasm progression [Fatal]

NARRATIVE: CASE EVENT DATE: 20140722
